FAERS Safety Report 13972531 (Version 2)
Quarter: 2021Q2

REPORT INFORMATION
  Report Type: Spontaneous
  Country: CA (occurrence: CA)
  Receive Date: 20170914
  Receipt Date: 20210512
  Transmission Date: 20210716
  Serious: Yes (Death, Life-Threatening, Disabling)
  Sender: FDA-Public Use
  Company Number: CA-009507513-1709CAN005915

PATIENT
  Age: 73 Year
  Sex: Female
  Weight: 80 kg

DRUGS (9)
  1. KEYTRUDA [Suspect]
     Active Substance: PEMBROLIZUMAB
     Indication: LUNG CARCINOMA CELL TYPE UNSPECIFIED STAGE IV
     Dosage: 164 MG, 1 EVERY 3 WEEKS
     Route: 042
     Dates: start: 2016, end: 2016
  2. PREDNISONE. [Concomitant]
     Active Substance: PREDNISONE
     Dosage: 30 MG PO BID
     Route: 048
     Dates: start: 20150125
  3. BUSPIRONE HYDROCHLORIDE. [Concomitant]
     Active Substance: BUSPIRONE HYDROCHLORIDE
     Dosage: 10 MG BID
     Dates: start: 2016
  4. METOPROLOL. [Concomitant]
     Active Substance: METOPROLOL
     Dosage: 50 MG DAILY
     Dates: start: 2016
  5. SLOW?K [Concomitant]
     Active Substance: POTASSIUM CHLORIDE
     Dosage: 600 MG QD
     Dates: start: 2016
  6. METFORMIN [Concomitant]
     Active Substance: METFORMIN HYDROCHLORIDE
     Dosage: 500 MG BID
     Route: 048
     Dates: start: 2016
  7. GLICLAZIDE [Concomitant]
     Active Substance: GLICLAZIDE
     Dosage: 10 MG BID
     Dates: start: 2016
  8. HYDROCHLOROTHIAZIDE (+) IRBESARTAN [Concomitant]
     Active Substance: HYDROCHLOROTHIAZIDE\IRBESARTAN
     Dosage: 15012.5 MG QD
     Dates: start: 2016
  9. ATORVASTATIN CALCIUM. [Concomitant]
     Active Substance: ATORVASTATIN CALCIUM
     Dosage: 20 MG QD X 90 DAYS
     Dates: start: 2016

REACTIONS (9)
  - Bradycardia [Fatal]
  - Dizziness [Fatal]
  - Atrioventricular block [Fatal]
  - Cardiac arrest [Fatal]
  - Facial paresis [Fatal]
  - Hypotension [Fatal]
  - Muscular weakness [Fatal]
  - Neuropathy peripheral [Fatal]
  - Myasthenic syndrome [Fatal]

NARRATIVE: CASE EVENT DATE: 2017
